FAERS Safety Report 7463902-8 (Version None)
Quarter: 2011Q2

REPORT INFORMATION
  Report Type: 
  Country: None (occurrence: None)
  Receive Date: 20110506
  Receipt Date: 20110504
  Transmission Date: 20111010
  Serious: Yes (Life-Threatening, Hospitalization, Other)
  Sender: FDA-Public Use
  Company Number: US-B.I. PHARMACEUTICALS,INC./RIDGEFIELD-2011-BP-02628BP

PATIENT
  Sex: Male
  Weight: 73.9 kg

DRUGS (5)
  1. PRADAXA [Suspect]
     Indication: ATRIAL FIBRILLATION
     Dosage: 300 MG
     Route: 048
     Dates: start: 20110202, end: 20110207
  2. SYNTHROID [Concomitant]
     Indication: THYROID DISORDER
     Route: 048
  3. SIMVASTATIN [Concomitant]
     Dosage: 40 MG
  4. LISINOPRIL [Concomitant]
     Dosage: 20 MG
  5. METOPROLOL TARTRATE [Concomitant]
     Dosage: 50 MG

REACTIONS (4)
  - GASTROINTESTINAL HAEMORRHAGE [None]
  - INTESTINAL OBSTRUCTION [None]
  - FAECALOMA [None]
  - ANAL HAEMORRHAGE [None]
